FAERS Safety Report 5774071-4 (Version None)
Quarter: 2008Q2

REPORT INFORMATION
  Report Type: 
  Country: None (occurrence: None)
  Receive Date: 20080601
  Receipt Date: 20080318
  Transmission Date: 20081010
  Serious: No
  Sender: FDA-Public Use
  Company Number: US200710003562

PATIENT
  Age: 70 Year
  Sex: Female
  Weight: 85.3 kg

DRUGS (12)
  1. BYETTA [Suspect]
     Indication: TYPE 2 DIABETES MELLITUS
     Dosage: 5 UG, 2/D, SUBCUTANEOUS ; 10 UG, 2/D, SUBCUTANEOUS ; 10 UG, 2/D, SUBCUTANEOUS
     Route: 058
     Dates: start: 20070501, end: 20070101
  2. BYETTA [Suspect]
     Indication: TYPE 2 DIABETES MELLITUS
     Dosage: 5 UG, 2/D, SUBCUTANEOUS ; 10 UG, 2/D, SUBCUTANEOUS ; 10 UG, 2/D, SUBCUTANEOUS
     Route: 058
     Dates: start: 20070101
  3. BYETTA [Suspect]
     Indication: TYPE 2 DIABETES MELLITUS
     Dosage: 5 UG, 2/D, SUBCUTANEOUS ; 10 UG, 2/D, SUBCUTANEOUS ; 10 UG, 2/D, SUBCUTANEOUS
     Route: 058
     Dates: start: 20070601
  4. BYETTA [Suspect]
  5. METFORMIN HCL [Concomitant]
  6. ZOCOR [Concomitant]
  7. CHROMIUM (CHROMIUM) [Concomitant]
  8. DRUG USED IN DIABETES [Concomitant]
  9. PRAVACHOL [Concomitant]
  10. LISINOPRIL/HCTZ (HYDROCHLOROTHIAZIDE, LISINOPRIL) [Concomitant]
  11. MAGNESIUM (MAGNESIUM) [Concomitant]
  12. FISH OIL (FISH OIL) [Concomitant]

REACTIONS (5)
  - BLOOD CHOLESTEROL INCREASED [None]
  - HYPOAESTHESIA [None]
  - MYALGIA [None]
  - PERIPHERAL COLDNESS [None]
  - POOR PERIPHERAL CIRCULATION [None]
